FAERS Safety Report 18172609 (Version 1)
Quarter: 2020Q3

REPORT INFORMATION
  Report Type: Spontaneous
  Country: US (occurrence: US)
  Receive Date: 20200820
  Receipt Date: 20200820
  Transmission Date: 20201103
  Serious: No
  Sender: FDA-Public Use
  Company Number: US-MTPC-MTDA2020-0060911

PATIENT
  Sex: Male

DRUGS (1)
  1. RADICAVA [Suspect]
     Active Substance: EDARAVONE
     Indication: AMYOTROPHIC LATERAL SCLEROSIS
     Dosage: UNK
     Route: 065

REACTIONS (5)
  - Chills [Unknown]
  - Tremor [Unknown]
  - Body temperature increased [Unknown]
  - Illness [Unknown]
  - Central venous catheter removal [Unknown]
